FAERS Safety Report 10026350 (Version 2)
Quarter: 2014Q1

REPORT INFORMATION
  Report Type: Spontaneous
  Country: US (occurrence: US)
  Receive Date: 20140321
  Receipt Date: 20140321
  Transmission Date: 20141002
  Serious: No
  Sender: FDA-Public Use
  Company Number: US-ALLERGAN-1314109US

PATIENT
  Sex: Female

DRUGS (3)
  1. LUMIGAN [Suspect]
     Indication: GLAUCOMA
     Dosage: 2 UNK, UNK
     Route: 047
  2. WATER PILL NOS [Concomitant]
     Indication: PRODUCT USED FOR UNKNOWN INDICATION
  3. REFRESH NOS [Concomitant]
     Indication: DRY EYE
     Dosage: UNK, PRN

REACTIONS (3)
  - Inappropriate schedule of drug administration [Unknown]
  - Foreign body sensation in eyes [Recovered/Resolved]
  - Ocular hyperaemia [Recovered/Resolved]
